FAERS Safety Report 8112434-2 (Version None)
Quarter: 2012Q1

REPORT INFORMATION
  Report Type: 
  Country: None (occurrence: None)
  Receive Date: 20120203
  Receipt Date: 20120126
  Transmission Date: 20120608
  Serious: Yes (Other)
  Sender: FDA-Public Use
  Company Number: US-BAYER-2012-007135

PATIENT
  Age: 35 Year
  Sex: Female
  Weight: 86.168 kg

DRUGS (2)
  1. MAGNESIUM HYDROXIDE TAB [Suspect]
     Indication: CONSTIPATION
     Dosage: 4 TABLESPOONS USED ONLY ONE TIME, BOTTLE COUNT 12OZ
     Route: 048
     Dates: start: 20120119, end: 20120119
  2. ATENOLOL [Concomitant]

REACTIONS (2)
  - RECTAL HAEMORRHAGE [None]
  - BACK PAIN [None]
